FAERS Safety Report 21717648 (Version 1)
Quarter: 2022Q4

REPORT INFORMATION
  Report Type: Spontaneous
  Country: US (occurrence: US)
  Receive Date: 20221212
  Receipt Date: 20221212
  Transmission Date: 20230113
  Serious: No
  Sender: FDA-Public Use
  Company Number: US-GBT-014318

PATIENT
  Sex: Male

DRUGS (2)
  1. OXBRYTA [Suspect]
     Active Substance: VOXELOTOR
     Indication: Product used for unknown indication
     Dosage: 300 MG TABLETS FOR ORAL SUSPENSION
     Route: 048
     Dates: start: 2022
  2. IBUPROFEN [Suspect]
     Active Substance: IBUPROFEN
     Indication: Product used for unknown indication
     Dates: start: 20220708

REACTIONS (5)
  - Swelling face [Unknown]
  - Body temperature increased [Unknown]
  - Urticaria [Unknown]
  - Off label use [Unknown]
  - Therapy cessation [None]

NARRATIVE: CASE EVENT DATE: 20220101
